FAERS Safety Report 5789370-X (Version None)
Quarter: 2008Q2

REPORT INFORMATION
  Report Type: 
  Country: None (occurrence: None)
  Receive Date: 20080626
  Receipt Date: 20080117
  Transmission Date: 20081010
  Serious: No
  Sender: FDA-Public Use
  Company Number: US-ASTRAZENECA-2008UW01317

PATIENT
  Age: 81 Year
  Sex: Female
  Weight: 73.9 kg

DRUGS (7)
  1. PULMICORT RESPULES [Suspect]
     Indication: CHRONIC OBSTRUCTIVE PULMONARY DISEASE
     Route: 055
  2. COMBIVENT [Concomitant]
  3. DUONEB [Concomitant]
  4. NEXIUM [Concomitant]
  5. ALLEGRA [Concomitant]
  6. TIAZAC [Concomitant]
  7. COZAAR [Concomitant]

REACTIONS (2)
  - OESOPHAGEAL DISORDER [None]
  - OESOPHAGEAL PAIN [None]
